FAERS Safety Report 8030372-0 (Version None)
Quarter: 2012Q1

REPORT INFORMATION
  Report Type: 
  Country: None (occurrence: None)
  Receive Date: 20120109
  Receipt Date: 20120109
  Transmission Date: 20120608
  Serious: No
  Sender: FDA-Public Use
  Company Number: None

PATIENT
  Age: 18 Year
  Sex: Female
  Weight: 49.895 kg

DRUGS (2)
  1. MOTRIN [Concomitant]
  2. NEOMYCIN AND POLYMYXIN B SULFATES AND HYDROCORTISONE [Suspect]
     Indication: OTITIS EXTERNA
     Dosage: 4 DROPS
     Dates: start: 20120105, end: 20120106

REACTIONS (1)
  - TYMPANIC MEMBRANE PERFORATION [None]
